FAERS Safety Report 8646142 (Version 8)
Quarter: 2013Q4

REPORT INFORMATION
  Report Type: Report from Study
  Country: US (occurrence: US)
  Receive Date: 20120702
  Receipt Date: 20131113
  Transmission Date: 20140711
  Serious: Yes (Death, Hospitalization, Other)
  Sender: FDA-Public Use
  Company Number: US-ACTELION-A-NJ2012-67800

PATIENT
  Age: 70 Year
  Sex: Male

DRUGS (2)
  1. TRACLEER [Suspect]
     Indication: PULMONARY ARTERIAL HYPERTENSION
     Dosage: UNK
     Route: 048
  2. COUMADIN [Concomitant]

REACTIONS (17)
  - Lung neoplasm malignant [Fatal]
  - Lung lobectomy [Unknown]
  - Poor peripheral circulation [Not Recovered/Not Resolved]
  - Transfusion [Unknown]
  - Limb injury [Not Recovered/Not Resolved]
  - Blood count abnormal [Unknown]
  - Weight decreased [Not Recovered/Not Resolved]
  - Dyspnoea [Not Recovered/Not Resolved]
  - Anaemia [Unknown]
  - Toxicity to various agents [Unknown]
  - Nonspecific reaction [Unknown]
  - Back pain [Unknown]
  - Labyrinthitis [Unknown]
  - Nausea [Unknown]
  - Vomiting [Unknown]
  - Dizziness [Unknown]
  - Fatigue [Unknown]
